FAERS Safety Report 22202858 (Version 1)
Quarter: 2023Q2

REPORT INFORMATION
  Report Type: Spontaneous
  Country: US (occurrence: US)
  Receive Date: 20230412
  Receipt Date: 20230412
  Transmission Date: 20230722
  Serious: No
  Sender: FDA-Public Use
  Company Number: US-ABBVIE-4343728

PATIENT
  Sex: Male

DRUGS (1)
  1. RINVOQ [Suspect]
     Active Substance: UPADACITINIB
     Indication: Product used for unknown indication
     Route: 048

REACTIONS (5)
  - Drug ineffective [Unknown]
  - Rash [Recovering/Resolving]
  - Alopecia areata [Unknown]
  - Pruritus [Recovering/Resolving]
  - Gastric disorder [Recovering/Resolving]
